FAERS Safety Report 7720625-5 (Version None)
Quarter: 2011Q3

REPORT INFORMATION
  Report Type: 
  Country: None (occurrence: None)
  Receive Date: 20110831
  Receipt Date: 20110816
  Transmission Date: 20111222
  Serious: Yes (Other)
  Sender: FDA-Public Use
  Company Number: PHHY2011AR74209

PATIENT
  Sex: Female

DRUGS (2)
  1. DIOVAN [Suspect]
     Indication: BLOOD PRESSURE
     Dosage: 80 MG, DAILY
     Dates: start: 20100908, end: 20110817
  2. CLONAZEPAM [Concomitant]
     Dosage: UNK UKN, UNK

REACTIONS (3)
  - HEART RATE INCREASED [None]
  - NERVOUSNESS [None]
  - BLOOD PRESSURE SYSTOLIC INCREASED [None]
